FAERS Safety Report 6373706-5 (Version None)
Quarter: 2009Q3

REPORT INFORMATION
  Report Type: 
  Country: None (occurrence: None)
  Receive Date: 20090924
  Receipt Date: 20090417
  Transmission Date: 20100115
  Serious: No
  Sender: FDA-Public Use
  Company Number: US-ASTRAZENECA-2009UW09769

PATIENT

DRUGS (3)
  1. SEROQUEL XR [Suspect]
     Route: 048
  2. CARBIDOPA-LEVODOPA [Interacting]
     Indication: PARKINSON'S DISEASE
  3. MIRAPEX [Interacting]
     Indication: PARKINSON'S DISEASE

REACTIONS (2)
  - INSOMNIA [None]
  - PAIN [None]
